FAERS Safety Report 14779137 (Version 1)
Quarter: 2018Q2

REPORT INFORMATION
  Report Type: Spontaneous
  Country: FR (occurrence: FR)
  Receive Date: 20180419
  Receipt Date: 20180419
  Transmission Date: 20180711
  Serious: Yes (Other)
  Sender: FDA-Public Use
  Company Number: FR-MERCK KGAA-2046064

PATIENT
  Sex: Female

DRUGS (1)
  1. NOVOTHYROX [Suspect]
     Active Substance: LEVOTHYROXINE SODIUM
     Indication: PRODUCT USED FOR UNKNOWN INDICATION

REACTIONS (27)
  - Depression [None]
  - Malaise [None]
  - Irritability [None]
  - Loss of consciousness [None]
  - Social avoidant behaviour [None]
  - Insomnia [None]
  - Muscle spasms [None]
  - Alopecia [None]
  - Fatigue [None]
  - Abdominal pain [None]
  - Mood altered [None]
  - Aggression [None]
  - Psychiatric symptom [None]
  - Feeling guilty [None]
  - Headache [None]
  - Depressed mood [None]
  - Pruritus [None]
  - Amnesia [None]
  - Anxiety [None]
  - Disturbance in attention [None]
  - Partner stress [None]
  - Suicidal ideation [None]
  - Libido decreased [None]
  - Personal relationship issue [None]
  - Middle insomnia [None]
  - Pain of skin [None]
  - Diarrhoea [None]
